FAERS Safety Report 4552919-9 (Version None)
Quarter: 2005Q1

REPORT INFORMATION
  Report Type: 
  Country: None (occurrence: None)
  Receive Date: 20050114
  Receipt Date: 20050106
  Transmission Date: 20050727
  Serious: Yes (Death, Hospitalization, Disabling, Other)
  Sender: FDA-Public Use
  Company Number: US-GLAXOSMITHKLINE-A0539601A

PATIENT
  Age: 62 Year
  Sex: Male
  Weight: 109.1 kg

DRUGS (1)
  1. NICORETTE [Suspect]
     Indication: SMOKING CESSATION THERAPY
     Route: 002
     Dates: start: 19840101

REACTIONS (5)
  - APHASIA [None]
  - BEDRIDDEN [None]
  - BRAIN NEOPLASM MALIGNANT [None]
  - CEREBROVASCULAR ACCIDENT [None]
  - WHEELCHAIR USER [None]
